FAERS Safety Report 15369943 (Version 25)
Quarter: 2020Q1

REPORT INFORMATION
  Report Type: Spontaneous
  Country: CA (occurrence: CA)
  Receive Date: 20180911
  Receipt Date: 20200106
  Transmission Date: 20200409
  Serious: Yes (Hospitalization)
  Sender: FDA-Public Use
  Company Number: CA-CELLTRION INC.-2018CA021813

PATIENT

DRUGS (34)
  1. INFLECTRA [Suspect]
     Active Substance: INFLIXIMAB-DYYB
     Indication: CROHN^S DISEASE
     Dosage: 170 MG, WEEK 0, 2, 6 THEN EVERY 8 WEEKS
     Route: 042
     Dates: start: 20180423, end: 20180423
  2. INFLECTRA [Suspect]
     Active Substance: INFLIXIMAB-DYYB
     Dosage: 400 MG, EVERY 4 WEEKS
     Route: 042
     Dates: start: 20180825, end: 20180825
  3. INFLECTRA [Suspect]
     Active Substance: INFLIXIMAB-DYYB
     Dosage: 350 MG, EVERY 4 WEEKS
     Route: 042
     Dates: start: 20190215, end: 20190215
  4. INFLECTRA [Suspect]
     Active Substance: INFLIXIMAB-DYYB
     Dosage: 350 MG, EVERY 4 WEEKS
     Route: 042
     Dates: start: 20190318, end: 20190318
  5. METHYLPREDNISOLONE. [Concomitant]
     Active Substance: METHYLPREDNISOLONE
     Dosage: 30 MG, 2X/DAY
     Route: 042
  6. METRONIDAZOLE. [Concomitant]
     Active Substance: METRONIDAZOLE
     Dosage: 500 MG, 3X/DAY
     Route: 048
  7. PREDNISONE. [Concomitant]
     Active Substance: PREDNISONE
     Dosage: 15 MG, ONCE A DAY (OD)
     Route: 048
  8. PREDNISONE. [Concomitant]
     Active Substance: PREDNISONE
     Dosage: 15 MG, 1X/DAY
     Route: 048
     Dates: start: 20181017
  9. IMURAN [Concomitant]
     Active Substance: AZATHIOPRINE
     Dosage: 125 MG, 1X/DAY
     Route: 048
     Dates: start: 20181202
  10. INFLECTRA [Suspect]
     Active Substance: INFLIXIMAB-DYYB
     Dosage: 500 MG, EVERY 4 WEEKS
     Route: 042
     Dates: start: 20181029, end: 20181029
  11. INFLECTRA [Suspect]
     Active Substance: INFLIXIMAB-DYYB
     Dosage: 350 MG, EVERY 4 WEEKS
     Route: 042
     Dates: start: 20190215, end: 20190415
  12. INFLECTRA [Suspect]
     Active Substance: INFLIXIMAB-DYYB
     Dosage: 350 MG, EVERY 4 WEEKS
     Route: 042
     Dates: start: 20190905, end: 20190905
  13. INFLECTRA [Suspect]
     Active Substance: INFLIXIMAB-DYYB
     Dosage: 200 MG (5 MG/KG) EVERY 6 WEEKS]
     Route: 042
     Dates: start: 20191223
  14. INFLECTRA [Suspect]
     Active Substance: INFLIXIMAB-DYYB
     Dosage: 350 MG, EVERY 4 WEEKS
     Route: 042
     Dates: start: 20190415, end: 20190415
  15. INFLECTRA [Suspect]
     Active Substance: INFLIXIMAB-DYYB
     Dosage: 350 MG[RX: 200 MG (5 MG/KG) EVERY 6 WEEKS]
     Route: 042
     Dates: start: 20191113
  16. INFLECTRA [Suspect]
     Active Substance: INFLIXIMAB-DYYB
     Dosage: 500 MG, EVERY 4 WEEKS
     Route: 042
     Dates: start: 20181004, end: 20181004
  17. INFLECTRA [Suspect]
     Active Substance: INFLIXIMAB-DYYB
     Dosage: 500 MG, EVERY 4 WEEKS
     Route: 042
     Dates: start: 20190121, end: 20190121
  18. INFLECTRA [Suspect]
     Active Substance: INFLIXIMAB-DYYB
     Dosage: 250 MG, EVERY 4 WEEKS
     Route: 042
     Dates: start: 20190513, end: 20190513
  19. INFLECTRA [Suspect]
     Active Substance: INFLIXIMAB-DYYB
     Dosage: 350 MG, EVERY 4 WEEKS
     Route: 042
     Dates: start: 20191003, end: 20191003
  20. VALGANCICLOVIR. [Concomitant]
     Active Substance: VALGANCICLOVIR
     Dosage: 900 MG, 2X/DAY FOR 2 WEEKS
     Dates: end: 2018
  21. INFLECTRA [Suspect]
     Active Substance: INFLIXIMAB-DYYB
     Dosage: 170 MG, WEEK 0, 2, 6 THEN EVERY 8 WEEKS
     Route: 042
     Dates: start: 20180423, end: 20180801
  22. INFLECTRA [Suspect]
     Active Substance: INFLIXIMAB-DYYB
     Dosage: 170 MG, WEEK 0, 2, 6 THEN EVERY 8 WEEKS
     Route: 042
     Dates: start: 20180606, end: 20180606
  23. INFLECTRA [Suspect]
     Active Substance: INFLIXIMAB-DYYB
     Dosage: 200 MG, EVERY 4 WEEKS
     Route: 042
     Dates: start: 20180926, end: 20180926
  24. INFLECTRA [Suspect]
     Active Substance: INFLIXIMAB-DYYB
     Dosage: 500 MG, EVERY 4 WEEKS
     Route: 042
     Dates: start: 20181224, end: 20181224
  25. INFLECTRA [Suspect]
     Active Substance: INFLIXIMAB-DYYB
     Dosage: 350 MG, EVERY 4 WEEKS
     Route: 042
     Dates: start: 20190618, end: 20191003
  26. INFLECTRA [Suspect]
     Active Substance: INFLIXIMAB-DYYB
     Dosage: 350 MG, EVERY 4 WEEKS
     Route: 042
     Dates: start: 20190813, end: 20190813
  27. INFLECTRA [Suspect]
     Active Substance: INFLIXIMAB-DYYB
     Dosage: 350 MG, EVERY 4 WEEKS
     Route: 042
     Dates: start: 20191003, end: 20191003
  28. INFLECTRA [Suspect]
     Active Substance: INFLIXIMAB-DYYB
     Dosage: 270 MG EVERY 8 WEEKS
     Route: 042
     Dates: start: 20180801, end: 20180801
  29. INFLECTRA [Suspect]
     Active Substance: INFLIXIMAB-DYYB
     Dosage: 500 MG, EVERY 4 WEEKS
     Route: 042
     Dates: start: 20181004, end: 20190121
  30. INFLECTRA [Suspect]
     Active Substance: INFLIXIMAB-DYYB
     Dosage: 500 MG, EVERY 4 WEEKS
     Route: 042
     Dates: start: 20181126, end: 20181126
  31. INFLECTRA [Suspect]
     Active Substance: INFLIXIMAB-DYYB
     Dosage: 350 MG, EVERY 4 WEEKS
     Route: 042
     Dates: start: 20190618, end: 20190618
  32. INFLECTRA [Suspect]
     Active Substance: INFLIXIMAB-DYYB
     Dosage: 350 MG, EVERY 4 WEEKS
     Route: 042
     Dates: start: 20190715, end: 20190715
  33. PREDNISONE. [Concomitant]
     Active Substance: PREDNISONE
     Dosage: 40 MG, DAILY FOR 2 WEEKS, THEN TAPER BY 5 MG PER WEEK
  34. VALGANCICLOVIR. [Concomitant]
     Active Substance: VALGANCICLOVIR
     Dosage: 450 MG, 2X/DAY
     Route: 048
     Dates: start: 20181017

REACTIONS (11)
  - Weight decreased [Unknown]
  - Drug level below therapeutic [Not Recovered/Not Resolved]
  - Incorrect dose administered [Unknown]
  - Condition aggravated [Not Recovered/Not Resolved]
  - Blood pressure fluctuation [Unknown]
  - Intentional product use issue [Unknown]
  - Product use issue [Unknown]
  - Weight increased [Unknown]
  - Drug level above therapeutic [Unknown]
  - Off label use [Unknown]
  - Pruritus [Unknown]

NARRATIVE: CASE EVENT DATE: 20180801
